FAERS Safety Report 18445589 (Version 2)
Quarter: 2023Q2

REPORT INFORMATION
  Report Type: Spontaneous
  Country: DE (occurrence: DE)
  Receive Date: 20201030
  Receipt Date: 20230615
  Transmission Date: 20230721
  Serious: Yes (Hospitalization, Other)
  Sender: FDA-Public Use
  Company Number: None

PATIENT
  Age: 73 Year
  Sex: Female
  Weight: 98 kg

DRUGS (4)
  1. XARELTO [Suspect]
     Active Substance: RIVAROXABAN
     Indication: Atrial fibrillation
     Dosage: 20 MG 1-0-0
     Route: 048
     Dates: start: 2017
  2. XARELTO [Suspect]
     Active Substance: RIVAROXABAN
     Indication: Tachycardia
  3. PANTOPRAZOLE [Concomitant]
     Active Substance: PANTOPRAZOLE
     Indication: Gastrooesophageal reflux disease
     Dosage: 20 MG 1-0-0
     Route: 048
     Dates: start: 2016
  4. BISOPROLOL [Concomitant]
     Active Substance: BISOPROLOL
     Dosage: 1,25 MG 1-0-1
     Route: 048
     Dates: start: 2016

REACTIONS (6)
  - Blood loss anaemia [Not Recovered/Not Resolved]
  - Dyspnoea [Unknown]
  - Pallor [Unknown]
  - Blood urine present [Not Recovered/Not Resolved]
  - Dyspnoea [Not Recovered/Not Resolved]
  - Fatigue [Unknown]

NARRATIVE: CASE EVENT DATE: 20170101
